FAERS Safety Report 17059531 (Version 1)
Quarter: 2019Q4

REPORT INFORMATION
  Report Type: Spontaneous
  Country: US (occurrence: US)
  Receive Date: 20191121
  Receipt Date: 20191121
  Transmission Date: 20200122
  Serious: Yes (Hospitalization, Other)
  Sender: FDA-Public Use
  Company Number: US-WEST THERAPEUTIC DEVELOPMENT-2019WTD00005

PATIENT
  Age: 3 Year
  Sex: Female
  Weight: 13.5 kg

DRUGS (8)
  1. FENTANYL. [Suspect]
     Active Substance: FENTANYL
     Dosage: 2 ?G/KG PER HOUR CONTINUOUS INFUSION
     Route: 065
  2. FENTANYL. [Suspect]
     Active Substance: FENTANYL
     Indication: MECHANICAL VENTILATION
     Dosage: 100 ?G ADMINISTERED DURING AIRLIFT
     Route: 065
  3. MIDAZOLAM [Concomitant]
     Active Substance: MIDAZOLAM HYDROCHLORIDE
     Dosage: 1 MG PER HOUR STARTED ON DAY 1
     Route: 065
  4. FENTANYL. [Suspect]
     Active Substance: FENTANYL
     Dosage: 1 ?G/KG ON DAY 1 (15?G)
     Route: 065
  5. MIDAZOLAM [Concomitant]
     Active Substance: MIDAZOLAM HYDROCHLORIDE
     Indication: MECHANICAL VENTILATION
     Dosage: 5 MG IN THE AIRLIFT
     Route: 065
  6. FENTANYL. [Suspect]
     Active Substance: FENTANYL
     Dosage: 0.5 ?G/KG, BOLUS ON DAY 0 (7?G)
     Route: 065
  7. MIDAZOLAM [Concomitant]
     Active Substance: MIDAZOLAM HYDROCHLORIDE
     Dosage: 1.5 MG PER HOUR STARTED DAY 3
     Route: 065
  8. DRUG FOR COVERAGE OF BACTERIAL MENINGITIS AND ASPIRATION PNEUMONIA [Concomitant]
     Route: 065

REACTIONS (6)
  - Bradycardia [Recovered/Resolved]
  - Intracranial pressure increased [Recovered/Resolved]
  - Motor dysfunction [Not Recovered/Not Resolved]
  - Brain herniation [Recovered/Resolved]
  - Brain oedema [Recovered/Resolved]
  - Toxic leukoencephalopathy [Recovered/Resolved]
